FAERS Safety Report 5609640-5 (Version None)
Quarter: 2008Q1

REPORT INFORMATION
  Report Type: 
  Country: None (occurrence: None)
  Receive Date: 20080131
  Receipt Date: 20061230
  Transmission Date: 20080703
  Serious: No
  Sender: FDA-Public Use
  Company Number: US-BAYER-200710009BCC

PATIENT
  Sex: Female
  Weight: 82 kg

DRUGS (1)
  1. ALEVE COLD AND SINUS [Suspect]
     Indication: NASOPHARYNGITIS
     Dosage: AS USED: 440 MG  UNIT DOSE: 220 MG
     Route: 048

REACTIONS (1)
  - ILL-DEFINED DISORDER [None]
